FAERS Safety Report 7206154-6 (Version None)
Quarter: 2010Q4

REPORT INFORMATION
  Report Type: 
  Country: None (occurrence: None)
  Receive Date: 20101229
  Receipt Date: 20101229
  Transmission Date: 20110411
  Serious: Yes (Disabling, Other)
  Sender: FDA-Public Use
  Company Number: None

PATIENT
  Sex: Female
  Weight: 52.1637 kg

DRUGS (1)
  1. DYSPORT [Suspect]
     Indication: SKIN WRINKLING
     Dosage: 1 DOSE 1 TIME
     Dates: start: 20101118

REACTIONS (6)
  - DEFORMITY [None]
  - EYELID OEDEMA [None]
  - EYELID PTOSIS [None]
  - MADAROSIS [None]
  - SKIN WRINKLING [None]
  - VISION BLURRED [None]
